FAERS Safety Report 14536683 (Version 1)
Quarter: 2018Q1

REPORT INFORMATION
  Report Type: Spontaneous
  Country: US (occurrence: US)
  Receive Date: 20180215
  Receipt Date: 20180215
  Transmission Date: 20180509
  Serious: Yes (Hospitalization)
  Sender: FDA-Public Use
  Company Number: None

PATIENT
  Age: 72 Year
  Sex: Female
  Weight: 73.8 kg

DRUGS (11)
  1. NUEDEXTA [Concomitant]
     Active Substance: DEXTROMETHORPHAN HYDROBROMIDE\QUINIDINE SULFATE
  2. DURAGESIC [Suspect]
     Active Substance: FENTANYL
  3. BETAPACE [Concomitant]
     Active Substance: SOTALOL HYDROCHLORIDE
  4. BACLOFEN. [Suspect]
     Active Substance: BACLOFEN
     Indication: PAIN
     Route: 048
  5. DICLOFENAC [Suspect]
     Active Substance: DICLOFENAC
  6. XARELTO [Concomitant]
     Active Substance: RIVAROXABAN
  7. OXYCODONE [Suspect]
     Active Substance: OXYCODONE
     Indication: PAIN
     Dosage: 50MCG Q3DAYS TOPICAL
     Route: 061
  8. LYRICA [Suspect]
     Active Substance: PREGABALIN
  9. LEXAPRO [Suspect]
     Active Substance: ESCITALOPRAM OXALATE
  10. LIDODERM [Suspect]
     Active Substance: LIDOCAINE
  11. DULERA [Concomitant]
     Active Substance: FORMOTEROL FUMARATE DIHYDRATE\MOMETASONE FUROATE

REACTIONS (4)
  - Therapy cessation [None]
  - Agitation [None]
  - Encephalopathy [None]
  - Lethargy [None]

NARRATIVE: CASE EVENT DATE: 20170623
